FAERS Safety Report 5144451-9 (Version None)
Quarter: 2006Q4

REPORT INFORMATION
  Report Type: 
  Country: None (occurrence: None)
  Receive Date: 20061031
  Receipt Date: 20061017
  Transmission Date: 20070319
  Serious: Yes (Hospitalization)
  Sender: FDA-Public Use
  Company Number: MEDI-0005070

PATIENT
  Age: 7 Month

DRUGS (1)
  1. SYNAGIS [Suspect]
     Indication: ANTIVIRAL PROPHYLAXIS
     Dosage: 70 MG, INTRAMUSCULAR
     Route: 030
     Dates: start: 20060125, end: 20060223

REACTIONS (1)
  - URINARY TRACT INFECTION [None]
